FAERS Safety Report 23461622 (Version 2)
Quarter: 2024Q2

REPORT INFORMATION
  Report Type: Report from Study
  Country: US (occurrence: US)
  Receive Date: 20240131
  Receipt Date: 20240503
  Transmission Date: 20240716
  Serious: No
  Sender: FDA-Public Use
  Company Number: US-BIOVITRUM-2023-US-012931

PATIENT
  Age: 61 Year
  Sex: Female

DRUGS (2)
  1. DOPTELET [Suspect]
     Active Substance: AVATROMBOPAG MALEATE
     Indication: Thrombocytopenia
     Dosage: 40MG ONCE DAILY
     Route: 048
     Dates: start: 20230619
  2. DOPTELET [Suspect]
     Active Substance: AVATROMBOPAG MALEATE
     Indication: Immune thrombocytopenia
     Dosage: 20MG DAILY
     Route: 048
     Dates: start: 20230619

REACTIONS (4)
  - Peripheral swelling [Unknown]
  - Contusion [Unknown]
  - Rash [Unknown]
  - Fatigue [Unknown]
